FAERS Safety Report 22178651 (Version 1)
Quarter: 2023Q2

REPORT INFORMATION
  Report Type: Spontaneous
  Country: ES (occurrence: ES)
  Receive Date: 20230405
  Receipt Date: 20230405
  Transmission Date: 20230721
  Serious: Yes (Life-Threatening)
  Sender: FDA-Public Use
  Company Number: None

PATIENT
  Age: 80 Year
  Sex: Male

DRUGS (12)
  1. IMBRUVICA [Suspect]
     Active Substance: IBRUTINIB
     Indication: Mantle cell lymphoma
     Dosage: 560.0 MG C/24 H
     Route: 048
     Dates: start: 20220504, end: 20230323
  2. GLICLAZIDE [Concomitant]
     Active Substance: GLICLAZIDE
     Indication: Diabetes mellitus
     Dosage: 30.0 MG, 30 MG  MODIFIED RELEASE TABLETS EFG
     Route: 048
     Dates: start: 20230110
  3. ALFUZOSIN HYDROCHLORIDE [Concomitant]
     Active Substance: ALFUZOSIN HYDROCHLORIDE
     Indication: Benign prostatic hyperplasia
     Dosage: 10.0 MG 10 MG  LONG-RELEASE TABLETS EFG
     Route: 048
     Dates: start: 20201007
  4. ATORVASTATIN [Concomitant]
     Active Substance: ATORVASTATIN
     Indication: Type V hyperlipidaemia
     Dosage: 20.0 MG 20 MG  FILM-COATED TABLETS EFG
     Route: 048
     Dates: start: 20161115
  5. MIRTAZAPINE [Concomitant]
     Active Substance: MIRTAZAPINE
     Indication: Generalised anxiety disorder
     Dosage: 15.0 MG C/24 H NOC
     Route: 048
     Dates: start: 20170227
  6. EDOXABAN TOSYLATE [Concomitant]
     Active Substance: EDOXABAN TOSYLATE
     Indication: Atrial fibrillation
     Dosage: 60.0 MG 60 MG FILM-COATED TABLETS
     Route: 048
     Dates: start: 20230228
  7. RAMIPRIL [Concomitant]
     Active Substance: RAMIPRIL
     Indication: Hypertension
     Dosage: 30.0 MG 30 MG/10 MG TABLETS
     Route: 048
     Dates: start: 20221019
  8. OMEPRAZOLE [Concomitant]
     Active Substance: OMEPRAZOLE
     Indication: Gastrooesophageal reflux disease
     Dosage: 20.0 MG DECE
     Route: 048
     Dates: start: 20210108
  9. TEBETANE COMPUESTO [ALANINE;GLUTAMIC ACID;GLYCINE;PRUNUS ARBOREA] [Concomitant]
     Indication: Benign prostatic hyperplasia
     Dosage: 1.0 CAPS C/8 HOURS
     Route: 048
     Dates: start: 20160122
  10. PARACETAMOL PENSA [Concomitant]
     Indication: Abdominal pain
     Dosage: 1.0 G DECOCE, PARACETAMOL PENSA 1 G TABLETS EFG
     Route: 048
     Dates: start: 20220617
  11. INSUCOR [Concomitant]
     Indication: Atrial fibrillation
     Dosage: 2.5 MG
     Route: 048
     Dates: start: 20230301
  12. ALLOPURINOL [Concomitant]
     Active Substance: ALLOPURINOL
     Indication: Hyperuricaemia
     Dosage: 100.0 MG DE
     Route: 048
     Dates: start: 20210108

REACTIONS (2)
  - Cardiac failure acute [Recovered/Resolved with Sequelae]
  - Ventricular dysfunction [Recovered/Resolved with Sequelae]

NARRATIVE: CASE EVENT DATE: 20230313
